FAERS Safety Report 8146593-2 (Version None)
Quarter: 2012Q1

REPORT INFORMATION
  Report Type: 
  Country: None (occurrence: None)
  Receive Date: 20120217
  Receipt Date: 20120209
  Transmission Date: 20120608
  Serious: Yes (Disabling)
  Sender: FDA-Public Use
  Company Number: US-B.I. PHARMACEUTICALS,INC./RIDGEFIELD-2012-BP-00594BP

PATIENT
  Sex: Male
  Weight: 74.84 kg

DRUGS (4)
  1. TUSSIONEX PLAIN ELIXIR [Concomitant]
     Indication: COUGH
     Dates: start: 20060119
  2. METFORMIN HCL [Concomitant]
     Indication: DIABETES MELLITUS
     Dates: start: 20100101
  3. LIPITOR [Concomitant]
     Indication: LIPIDS ABNORMAL
     Dates: start: 20080101
  4. TRADJENTA [Suspect]
     Indication: TYPE 2 DIABETES MELLITUS
     Dosage: 5 MG
     Dates: start: 20111010

REACTIONS (1)
  - PANCREATIC CARCINOMA [None]
